FAERS Safety Report 24020634 (Version 1)
Quarter: 2024Q2

REPORT INFORMATION
  Report Type: Spontaneous
  Country: US (occurrence: None)
  Receive Date: 20240627
  Receipt Date: 20240627
  Transmission Date: 20240716
  Serious: No
  Sender: FDA-Public Use
  Company Number: None

PATIENT
  Sex: Male

DRUGS (2)
  1. MYCOPHENOLATE MOFETIL [Suspect]
     Active Substance: MYCOPHENOLATE MOFETIL
     Indication: Interstitial lung disease
     Dosage: FREQUENCY : TWICE A DAY;?
     Route: 048
     Dates: start: 202402
  2. OFEV [Concomitant]
     Active Substance: NINTEDANIB

REACTIONS (4)
  - Decreased appetite [None]
  - Oxygen saturation decreased [None]
  - Loss of consciousness [None]
  - Blood pressure decreased [None]
